FAERS Safety Report 7801428 (Version 2)
Quarter: 2014Q4

REPORT INFORMATION
  Report Type: Spontaneous
  Country: US (occurrence: US)
  Receive Date: 20110207
  Receipt Date: 20141017
  Transmission Date: 20150529
  Serious: Yes (Hospitalization, Other)
  Sender: FDA-Public Use
  Company Number: US-JNJFOC-20040600486

PATIENT
  Age: 18 Month
  Sex: Female
  Weight: 11 kg

DRUGS (2)
  1. ACETAMINOPHEN. [Suspect]
     Active Substance: ACETAMINOPHEN
     Indication: PRODUCT USED FOR UNKNOWN INDICATION
     Route: 048
  2. ACETAMINOPHEN. [Suspect]
     Active Substance: ACETAMINOPHEN
     Route: 048

REACTIONS (9)
  - Metabolic acidosis [Recovered/Resolved]
  - Activated partial thromboplastin time prolonged [Recovered/Resolved]
  - Aspartate aminotransferase increased [Recovered/Resolved]
  - Prothrombin level increased [Recovered/Resolved]
  - Mental status changes [Recovered/Resolved]
  - Hypotension [Recovered/Resolved]
  - Overdose [Unknown]
  - Respiratory failure [Recovered/Resolved]
  - Accidental exposure to product [Recovered/Resolved]
